FAERS Safety Report 6430124-9 (Version None)
Quarter: 2009Q4

REPORT INFORMATION
  Report Type: 
  Country: None (occurrence: None)
  Receive Date: 20091104
  Receipt Date: 20091027
  Transmission Date: 20100525
  Serious: Yes (Hospitalization)
  Sender: FDA-Public Use
  Company Number: SPV1-2009-01654

PATIENT
  Age: 59 Year
  Sex: Male

DRUGS (5)
  1. FOSRENOL [Suspect]
     Dosage: 1000 MG, 1 TABLET WITH EACH MEAL, ORAL
     Route: 048
  2. AMARYL [Concomitant]
  3. LIPITOR [Concomitant]
  4. PHOSLO [Concomitant]
  5. MULTIVITAMIN /00097801/ (ASCORBIC ACID, CALCIUM PANTOTHENATE, ERGOCALC [Concomitant]

REACTIONS (1)
  - VERTIGO [None]
